FAERS Safety Report 5867620-9 (Version None)
Quarter: 2008Q3

REPORT INFORMATION
  Report Type: 
  Country: None (occurrence: None)
  Receive Date: 20080902
  Receipt Date: 20080818
  Transmission Date: 20090109
  Serious: Yes (Other)
  Sender: FDA-Public Use
  Company Number: FR-ROCHE-491515

PATIENT
  Sex: Female
  Weight: 61 kg

DRUGS (13)
  1. PEGASYS [Suspect]
     Indication: HEPATITIS C
     Route: 058
     Dates: start: 20070112, end: 20070309
  2. VX-950 [Suspect]
     Indication: HEPATITIS C
     Dosage: GIVEN EVERY 8 HOURS.
     Route: 048
     Dates: start: 20070112, end: 20070312
  3. IBUPROFEN TABLETS [Suspect]
     Indication: HEADACHE
     Route: 048
     Dates: end: 20070209
  4. POLYKARAYA [Concomitant]
     Indication: CONSTIPATION
     Route: 048
     Dates: start: 20050101
  5. TRANXENE [Concomitant]
     Indication: ANXIETY
     Route: 048
     Dates: start: 20070114
  6. FERROGRAD [Concomitant]
     Indication: IRON DEFICIENCY
     Route: 048
     Dates: start: 20040101
  7. PRIMPERAN INJ [Concomitant]
     Indication: NAUSEA
     Route: 048
     Dates: start: 20070209
  8. DEXERYL [Concomitant]
     Indication: DRY SKIN
     Dosage: GENERIC REPORTED AS OSINEX.
     Route: 061
     Dates: start: 20070209
  9. ACETAMINOPHEN [Concomitant]
     Indication: HEADACHE
     Route: 048
     Dates: start: 20070210
  10. ATARAX [Concomitant]
     Dosage: GENERIC REPORTED AS ALPRAZOLAM.
     Route: 048
     Dates: start: 20070223, end: 20070326
  11. DESLORATADINE [Concomitant]
     Indication: RASH
     Route: 048
     Dates: start: 20070223, end: 20070326
  12. DIPROSONE [Concomitant]
     Dosage: DOSE REPORTED AS ONE APPLICATION.
     Route: 061
     Dates: start: 20070223
  13. FISH OIL [Concomitant]
     Indication: FATIGUE
     Dosage: DRUG REPORTED AS CAPITAL OMEGA 3 (FISH OIL)
     Route: 048
     Dates: start: 20070117

REACTIONS (2)
  - ANAEMIA [None]
  - RENAL FAILURE ACUTE [None]
